FAERS Safety Report 18704764 (Version 4)
Quarter: 2021Q1

REPORT INFORMATION
  Report Type: Report from Study
  Country: None (occurrence: FI)
  Receive Date: 20210105
  Receipt Date: 20210127
  Transmission Date: 20210419
  Serious: Yes (Disabling)
  Sender: FDA-Public Use
  Company Number: FI-ABBVIE-21K-055-3716516-00

PATIENT
  Sex: Male
  Weight: 95 kg

DRUGS (5)
  1. KETIPINOR [Concomitant]
     Active Substance: QUETIAPINE FUMARATE
     Indication: INSOMNIA
     Dosage: 1 1/2 FOR THE NIGHT, 1/2 IN THE MORNING
  2. DUODOPA [Suspect]
     Active Substance: CARBIDOPA\LEVODOPA
     Indication: PARKINSON^S DISEASE
     Dosage: MD 11.5 ML; CD 6.4 ML/H; 16 H TREATMENT
     Route: 050
     Dates: start: 20201115
  3. MELATONIN [Concomitant]
     Active Substance: MELATONIN
     Indication: PRODUCT USED FOR UNKNOWN INDICATION
     Dosage: 1 FOR THE NIGHT
  4. SINEMET [Concomitant]
     Active Substance: CARBIDOPA\LEVODOPA
     Indication: PRODUCT USED FOR UNKNOWN INDICATION
     Dosage: 1 FOR THE NIGHT
  5. DUODOPA [Suspect]
     Active Substance: CARBIDOPA\LEVODOPA
     Route: 050

REACTIONS (4)
  - Therapeutic product effect incomplete [Not Recovered/Not Resolved]
  - Stoma site discharge [Recovering/Resolving]
  - Mobility decreased [Not Recovered/Not Resolved]
  - Stoma site pain [Recovering/Resolving]

NARRATIVE: CASE EVENT DATE: 2020
